FAERS Safety Report 18118609 (Version 1)
Quarter: 2020Q3

REPORT INFORMATION
  Report Type: Spontaneous
  Country: US (occurrence: US)
  Receive Date: 20200806
  Receipt Date: 20200806
  Transmission Date: 20201103
  Serious: No
  Sender: FDA-Public Use
  Company Number: US-PFIZER INC-2020295561

PATIENT
  Age: 63 Year
  Sex: Male
  Weight: 95.25 kg

DRUGS (4)
  1. SULFASALAZINE. [Suspect]
     Active Substance: SULFASALAZINE
     Indication: ARTHRITIS
     Dosage: 500 MG, DAILY (FOR A WEEK)
     Route: 048
  2. SULFASALAZINE. [Suspect]
     Active Substance: SULFASALAZINE
     Dosage: 1000 MG, 2X/DAY
     Route: 048
  3. SULFASALAZINE. [Suspect]
     Active Substance: SULFASALAZINE
     Dosage: 1500 MG, DAILY, (TWO 500MG TABLETS, BY MOUTH, IN THE MORNING, AND ONE IN THE EVENING)
     Route: 048
  4. SULFASALAZINE. [Suspect]
     Active Substance: SULFASALAZINE
     Dosage: 500 MG, 2X/DAY (FOR A WEEK)
     Route: 048

REACTIONS (3)
  - Product use in unapproved indication [Unknown]
  - Chromaturia [Unknown]
  - Off label use [Unknown]
